FAERS Safety Report 8827925 (Version 1)
Quarter: 2012Q4

REPORT INFORMATION
  Report Type: 
  Country: US (occurrence: US)
  Receive Date: 20121005
  Receipt Date: 20121005
  Transmission Date: 20130627
  Serious: No
  Sender: FDA-Public Use
  Company Number: US-PFIZER INC-2012243119

PATIENT
  Age: 30 Year
  Sex: Female
  Weight: 53.52 kg

DRUGS (12)
  1. GENOTROPIN MQ [Suspect]
     Dosage: 2.0 mg, every day
     Route: 058
  2. ORTHO EVRA [Concomitant]
     Dosage: UNK (Dis week)
  3. FLORINEF [Concomitant]
     Dosage: 0.1 mg, UNK
  4. SYNTHROID [Concomitant]
     Dosage: 175 ug, UNK
  5. PROZAC [Concomitant]
     Dosage: 20 mg, UNK
  6. CORTISOL [Concomitant]
     Dosage: UNK
  7. CALCIUM + D CHW [Concomitant]
     Dosage: UNK
  8. VITAMIN D [Concomitant]
     Dosage: 1000 IU, UNK
  9. DHEA [Concomitant]
     Dosage: 10 mg, UNK
  10. TYLENOL [Concomitant]
     Dosage: 325 mg, UNK
  11. IBUPROFEN [Concomitant]
     Dosage: 200 mg, UNK
  12. LUNESTA [Concomitant]
     Dosage: 1 mg, UNK

REACTIONS (2)
  - Somnolence [Unknown]
  - Asthenia [Unknown]
